FAERS Safety Report 8457075-2 (Version None)
Quarter: 2012Q2

REPORT INFORMATION
  Report Type: 
  Country: None (occurrence: None)
  Receive Date: 20120615
  Receipt Date: 20120606
  Transmission Date: 20120825
  Serious: Yes (Other)
  Sender: FDA-Public Use
  Company Number: AUR-APL-2012-02591

PATIENT
  Sex: Male

DRUGS (3)
  1. LIPITOR [Suspect]
     Indication: BLOOD CHOLESTEROL
     Dates: start: 20120326
  2. XARELTO [Suspect]
     Indication: ATRIAL FIBRILLATION
     Dosage: 20 MG (20 MG, 1 IN 1 D), ORAL
     Route: 048
     Dates: start: 20120326
  3. METOPROLOL TARTRATE [Suspect]
     Indication: PRODUCT USED FOR UNKNOWN INDICATION
     Dates: start: 20120326

REACTIONS (9)
  - RASH PUSTULAR [None]
  - HAEMORRHAGE [None]
  - ERYTHEMA [None]
  - BURNING SENSATION [None]
  - NO THERAPEUTIC RESPONSE [None]
  - MOVEMENT DISORDER [None]
  - BLOOD BLISTER [None]
  - OEDEMA PERIPHERAL [None]
  - FRUSTRATION [None]
